FAERS Safety Report 14755359 (Version 1)
Quarter: 2018Q2

REPORT INFORMATION
  Report Type: Spontaneous
  Country: GB (occurrence: GB)
  Receive Date: 20180413
  Receipt Date: 20180413
  Transmission Date: 20180711
  Serious: Yes (Life-Threatening, Hospitalization, Other)
  Sender: FDA-Public Use
  Company Number: GB-CIPLA LTD.-2018GB15025

PATIENT

DRUGS (5)
  1. FLUOROURACIL. [Suspect]
     Active Substance: FLUOROURACIL
     Indication: BREAST CANCER
     Dosage: UNK, 6 MONTHS
     Route: 048
     Dates: start: 20110214, end: 20110714
  2. DOCETAXEL. [Suspect]
     Active Substance: DOCETAXEL
     Indication: BREAST CANCER
     Dosage: UNK, 6 MONTHS
     Route: 048
     Dates: start: 20110214, end: 20110714
  3. CYCLOPHOSPHAMIDE. [Suspect]
     Active Substance: CYCLOPHOSPHAMIDE
     Indication: BREAST CANCER
     Dosage: UNK, 6 MONTHS
     Route: 048
     Dates: start: 20110214, end: 20110714
  4. FLUCLOXACILLIN [Suspect]
     Active Substance: FLUCLOXACILLIN
     Indication: CELLULITIS
     Dosage: UNK, 7 DAYS
     Route: 048
     Dates: start: 20171228, end: 20180102
  5. EPIRUBICIN [Suspect]
     Active Substance: EPIRUBICIN
     Indication: BREAST CANCER
     Dosage: UNK, 6 MONTHS
     Route: 048
     Dates: start: 20110214, end: 20110714

REACTIONS (4)
  - Apparent death [Unknown]
  - Skin burning sensation [Not Recovered/Not Resolved]
  - Malaise [Not Recovered/Not Resolved]
  - Respiration abnormal [Unknown]

NARRATIVE: CASE EVENT DATE: 20110514
